FAERS Safety Report 10905344 (Version 1)
Quarter: 2015Q1

REPORT INFORMATION
  Report Type: Spontaneous
  Country: CA (occurrence: CA)
  Receive Date: 20150311
  Receipt Date: 20150311
  Transmission Date: 20150721
  Serious: Yes (Other)
  Sender: FDA-Public Use
  Company Number: PHHY2015CA028011

PATIENT
  Age: 62 Year
  Sex: Female

DRUGS (1)
  1. GLEEVEC [Suspect]
     Active Substance: IMATINIB MESYLATE
     Indication: PRODUCT USED FOR UNKNOWN INDICATION
     Dosage: 400 MG, QD
     Route: 048
     Dates: start: 20091028, end: 20100128

REACTIONS (12)
  - Rash macular [Recovered/Resolved]
  - Periorbital oedema [Unknown]
  - Chest discomfort [Unknown]
  - Cough [Unknown]
  - Heart rate increased [Unknown]
  - Oxygen saturation decreased [Unknown]
  - Dyspnoea exertional [Recovering/Resolving]
  - Interstitial lung disease [Unknown]
  - Hypoxia [Unknown]
  - Palpitations [Unknown]
  - Alveolitis allergic [Unknown]
  - Blood pressure systolic increased [Unknown]

NARRATIVE: CASE EVENT DATE: 20091211
